FAERS Safety Report 8878890 (Version 1)
Quarter: 2012Q4

REPORT INFORMATION
  Report Type: 
  Country: US (occurrence: US)
  Receive Date: 20121030
  Receipt Date: 20121030
  Transmission Date: 20130627
  Serious: No
  Sender: FDA-Public Use
  Company Number: US-VERTEX PHARMACEUTICAL INC.-2012-023615

PATIENT
  Age: 53 Year
  Sex: Male
  Weight: 89.34 kg

DRUGS (10)
  1. VX-950 [Suspect]
     Indication: HEPATITIS C
     Dosage: 750 mg, tid
     Route: 048
  2. PEGASYS [Concomitant]
     Indication: HEPATITIS C
  3. RIBAVIRIN [Concomitant]
     Indication: HEPATITIS C
     Dosage: 200 mg, UNK
  4. ASPIRIN [Concomitant]
     Dosage: 81 mg, UNK
  5. METFORMIN [Concomitant]
     Dosage: 1000 mg, UNK
  6. OMEPRAZOLE [Concomitant]
     Dosage: 40 mg, UNK
  7. HYDROCHLOROTH [Concomitant]
     Dosage: 25 mg, UNK
  8. METOPROLOL [Concomitant]
     Dosage: 25 mg, UNK
  9. LISINOPRIL [Concomitant]
     Dosage: 5 mg, UNK
  10. MAALOX PLUS                        /00018101/ [Concomitant]

REACTIONS (3)
  - Fatigue [Unknown]
  - Vomiting [Unknown]
  - Nausea [Unknown]
